FAERS Safety Report 4413405-X (Version None)
Quarter: 2004Q3

REPORT INFORMATION
  Report Type: 
  Country: None (occurrence: None)
  Receive Date: 20040728
  Receipt Date: 20040715
  Transmission Date: 20050211
  Serious: Yes (Other)
  Sender: FDA-Public Use
  Company Number: US-JNJFOC-20040704308

PATIENT
  Sex: Female

DRUGS (1)
  1. DURAGESIC [Suspect]
     Dosage: TRANSDERMAL
     Route: 062

REACTIONS (6)
  - FALL [None]
  - FOOT FRACTURE [None]
  - LOSS OF CONSCIOUSNESS [None]
  - OVERDOSE [None]
  - PHARMACEUTICAL PRODUCT COMPLAINT [None]
  - TOOTH FRACTURE [None]
